FAERS Safety Report 10271881 (Version 1)
Quarter: 2014Q3

REPORT INFORMATION
  Report Type: Spontaneous
  Country: US (occurrence: US)
  Receive Date: 20140702
  Receipt Date: 20140702
  Transmission Date: 20150326
  Serious: Yes (Hospitalization, Other)
  Sender: FDA-Public Use
  Company Number: PHHY2014US077839

PATIENT
  Age: 56 Year
  Sex: Female

DRUGS (2)
  1. DOXORUBICIN [Suspect]
     Active Substance: DOXORUBICIN
     Indication: CHOROID MELANOMA
  2. CARMUSTINE [Suspect]
     Active Substance: CARMUSTINE
     Indication: CHOROID MELANOMA

REACTIONS (12)
  - Vision blurred [Recovered/Resolved]
  - Hepatomegaly [Unknown]
  - Dysarthria [Recovered/Resolved]
  - Posterior reversible encephalopathy syndrome [Unknown]
  - Hypertension [Recovered/Resolved]
  - Cerebellar syndrome [Recovered/Resolved]
  - Abdominal tenderness [Unknown]
  - Alanine aminotransferase increased [Unknown]
  - Aspartate aminotransferase increased [Unknown]
  - Metastases to liver [Unknown]
  - Drug ineffective [Unknown]
  - Aphasia [Recovered/Resolved]
